FAERS Safety Report 7689103-6 (Version None)
Quarter: 2011Q3

REPORT INFORMATION
  Report Type: 
  Country: None (occurrence: None)
  Receive Date: 20110817
  Receipt Date: 20110809
  Transmission Date: 20111222
  Serious: Yes (Life-Threatening, Hospitalization, Disabling, Other)
  Sender: FDA-Public Use
  Company Number: US-MERCK-1106USA03153

PATIENT
  Age: 22 Year
  Sex: Female
  Weight: 85 kg

DRUGS (12)
  1. HORMONAL CONTRACEPTIVES (UNSPECIFIED) [Suspect]
     Route: 065
  2. FIORICET [Concomitant]
     Route: 065
  3. MAXALT-MLT [Suspect]
     Indication: MIGRAINE
     Route: 048
     Dates: start: 20070101, end: 20110613
  4. PERCOCET [Concomitant]
     Route: 065
  5. PHENTERMINE [Concomitant]
     Route: 065
  6. MOTRIN [Concomitant]
     Route: 065
  7. ATIVAN [Concomitant]
     Route: 065
  8. COCAINE [Suspect]
     Route: 065
  9. LEXAPRO [Concomitant]
     Route: 065
  10. HEMP [Suspect]
     Route: 065
  11. ASPIRIN [Concomitant]
     Route: 065
  12. LOVAZA [Concomitant]
     Route: 065

REACTIONS (2)
  - CEREBROVASCULAR ACCIDENT [None]
  - NERVOUS SYSTEM DISORDER [None]
